FAERS Safety Report 15793220 (Version 2)
Quarter: 2019Q1

REPORT INFORMATION
  Report Type: Spontaneous
  Country: US (occurrence: US)
  Receive Date: 20190107
  Receipt Date: 20190115
  Transmission Date: 20190417
  Serious: Yes (Hospitalization)
  Sender: FDA-Public Use
  Company Number: US-FRESENIUS MEDICAL CARE RENAL THERAPIES GROUP-FMC-1901-000004

PATIENT
  Age: 49 Year
  Sex: Female
  Weight: 86 kg

DRUGS (1)
  1. DELFLEX WITH DEXTROSE 2.5% LOW MAGNESIUM LOW CALCIUM [Suspect]
     Active Substance: CALCIUM CHLORIDE\DEXTROSE\MAGNESIUM CHLORIDE\SODIUM CHLORIDE\SODIUM LACTATE
     Indication: END STAGE RENAL DISEASE
     Dosage: 2300ML X 5 FILLS
     Route: 033

REACTIONS (4)
  - Fluid overload [Recovering/Resolving]
  - Nausea [Unknown]
  - Vomiting [Unknown]
  - Confusional state [Unknown]

NARRATIVE: CASE EVENT DATE: 20181230
